FAERS Safety Report 9046420 (Version 1)
Quarter: 2013Q1

REPORT INFORMATION
  Report Type: Report from Study
  Country: US (occurrence: US)
  Receive Date: 20130130
  Receipt Date: 20130130
  Transmission Date: 20140127
  Serious: No
  Sender: FDA-Public Use
  Company Number: US-ABBOTT-12P-163-0956804-00

PATIENT
  Age: 59 None
  Sex: Female

DRUGS (19)
  1. HUMIRA [Suspect]
     Indication: PSORIATIC ARTHROPATHY
     Dates: start: 20120622
  2. HUMIRA [Suspect]
     Dates: start: 20120706, end: 20120830
  3. UNSPECIFIED INGREDIENT [Suspect]
     Indication: DIABETES MELLITUS
  4. CYMBALTA [Concomitant]
     Indication: DEPRESSION
     Dosage: 60 MG DAILY
  5. PROTONIX [Concomitant]
     Indication: GASTROOESOPHAGEAL REFLUX DISEASE
     Dosage: 40 MG DAILY
  6. LISINOPRIL [Concomitant]
     Indication: HYPERTENSION
     Dosage: 1/2 TAB
  7. VYVANSE [Concomitant]
     Indication: ATTENTION DEFICIT/HYPERACTIVITY DISORDER
  8. FUROSEMIDE [Concomitant]
     Indication: OEDEMA
     Dosage: 20 MG DAILY
  9. MIRAPEX [Concomitant]
     Indication: RESTLESS LEGS SYNDROME
  10. GLIPIZIDE [Concomitant]
     Indication: DIABETES MELLITUS
     Dosage: 5 MG, 1/2 TAB DAILY
  11. HYDROCODONE [Concomitant]
     Indication: PAIN
     Dosage: 735/325MG, ONE 4 TIMES A DAY, AS NEEDED
  12. SIMVASTATIN [Concomitant]
     Indication: BLOOD CHOLESTEROL INCREASED
  13. PRENATAL VITAMINS [Concomitant]
     Indication: PRODUCT USED FOR UNKNOWN INDICATION
  14. B-COMPLEX [Concomitant]
     Indication: PRODUCT USED FOR UNKNOWN INDICATION
  15. ZOLPIDEM [Concomitant]
     Indication: BILEVEL POSITIVE AIRWAY PRESSURE
     Dosage: 10 MG, 1 AT BEDTIME
  16. VENTOLIN [Concomitant]
     Indication: PRODUCT USED FOR UNKNOWN INDICATION
  17. METOPROLOL [Concomitant]
     Indication: PRODUCT USED FOR UNKNOWN INDICATION
     Dosage: 1/2 TAB IN AM AND PM
  18. VITAMIN B12 [Concomitant]
     Indication: PRODUCT USED FOR UNKNOWN INDICATION
  19. VITAMIN D [Concomitant]
     Indication: PRODUCT USED FOR UNKNOWN INDICATION

REACTIONS (15)
  - Fatigue [Recovering/Resolving]
  - Injection site pain [Not Recovered/Not Resolved]
  - Injection site pain [Unknown]
  - Incorrect dose administered [Unknown]
  - Psoriasis [Not Recovered/Not Resolved]
  - Pain in extremity [Not Recovered/Not Resolved]
  - Arthralgia [Not Recovered/Not Resolved]
  - Arthralgia [Not Recovered/Not Resolved]
  - Pain [Not Recovered/Not Resolved]
  - Local swelling [Not Recovered/Not Resolved]
  - Pain in extremity [Not Recovered/Not Resolved]
  - Cyst [Not Recovered/Not Resolved]
  - Exostosis [Not Recovered/Not Resolved]
  - Tendonitis [Not Recovered/Not Resolved]
  - Weight increased [Recovering/Resolving]
